FAERS Safety Report 8663591 (Version 3)
Quarter: 2012Q4

REPORT INFORMATION
  Report Type: 
  Country: US (occurrence: US)
  Receive Date: 20120713
  Receipt Date: 20121213
  Transmission Date: 20130627
  Serious: Yes (Other)
  Sender: FDA-Public Use
  Company Number: PHEH2012US012580

PATIENT
  Age: 82 Year
  Sex: Female

DRUGS (13)
  1. EXELON PATCH [Suspect]
     Indication: DEMENTIA ALZHEIMER^S TYPE
     Dosage: 4.6 mg, daily
     Route: 062
     Dates: start: 20120501
  2. EXELON PATCH [Suspect]
     Dosage: 2 patches (4.6 mg), daily
     Route: 062
  3. EXELON PATCH [Suspect]
     Dosage: 9.5 mg, once daily
     Route: 062
  4. NAMENDA [Concomitant]
     Dosage: UNK
  5. ARICEPT [Concomitant]
     Dosage: UNK
  6. PRAVASTATIN [Concomitant]
     Dosage: UNK UKN, UNK
  7. CYMBALTA [Concomitant]
     Dosage: UNK UKN, UNK
  8. SEROQUEL [Concomitant]
     Dosage: UNK UKN, UNK
  9. CARVEDILOL [Concomitant]
  10. WARFARIN [Concomitant]
  11. NEXIUM [Concomitant]
  12. GABAPENTIN [Concomitant]
  13. QUETIAPINE [Concomitant]

REACTIONS (8)
  - Traumatic haematoma [Not Recovered/Not Resolved]
  - Fall [Not Recovered/Not Resolved]
  - Feeling abnormal [Unknown]
  - Mood altered [Not Recovered/Not Resolved]
  - Confusional state [Not Recovered/Not Resolved]
  - Incorrect dose administered [Unknown]
  - Drug ineffective [Not Recovered/Not Resolved]
  - Memory impairment [Not Recovered/Not Resolved]
